FAERS Safety Report 19261334 (Version 1)
Quarter: 2021Q2

REPORT INFORMATION
  Report Type: Spontaneous
  Country: GB (occurrence: GB)
  Receive Date: 20210515
  Receipt Date: 20210515
  Transmission Date: 20210717
  Serious: Yes (Other)
  Sender: FDA-Public Use
  Company Number: GB-ACCORD-225017

PATIENT
  Age: 51 Year
  Sex: Male
  Weight: 85 kg

DRUGS (8)
  1. TADALAFIL. [Suspect]
     Active Substance: TADALAFIL
     Indication: BENIGN PROSTATIC HYPERPLASIA
     Dosage: 5MG DAILY
     Route: 048
     Dates: start: 201809
  2. GINKGO BILOBA [Concomitant]
     Active Substance: GINKGO
     Indication: ILL-DEFINED DISORDER
  3. SERENOA REPENS [Concomitant]
     Active Substance: SERENOA REPENS WHOLE
     Indication: ILL-DEFINED DISORDER
  4. TERAZOSIN [Concomitant]
     Active Substance: TERAZOSIN HYDROCHLORIDE
     Indication: ILL-DEFINED DISORDER
  5. ESOMEPRAZOLE/ESOMEPRAZOLE MAGNESIUM/ESOMEPRAZOLE SODIUM [Concomitant]
     Active Substance: ESOMEPRAZOLE
     Indication: ILL-DEFINED DISORDER
  6. ADALIMUMAB [Concomitant]
     Active Substance: ADALIMUMAB
     Indication: ILL-DEFINED DISORDER
  7. ETORICOXIB. [Concomitant]
     Active Substance: ETORICOXIB
     Indication: ILL-DEFINED DISORDER
  8. HYPERICUM PERFORATUM [Concomitant]
     Active Substance: HYPERICUM PERFORATUM WHOLE
     Indication: ILL-DEFINED DISORDER

REACTIONS (1)
  - Haemorrhoids [Recovering/Resolving]

NARRATIVE: CASE EVENT DATE: 2019
